FAERS Safety Report 17734458 (Version 2)
Quarter: 2022Q4

REPORT INFORMATION
  Report Type: Report from Study
  Country: CO (occurrence: CO)
  Receive Date: 20200501
  Receipt Date: 20221102
  Transmission Date: 20230112
  Serious: Yes (Other)
  Sender: FDA-Public Use
  Company Number: CO-NOVARTISPH-NVSC2018CO003674

PATIENT
  Sex: Male

DRUGS (1)
  1. EXJADE [Suspect]
     Active Substance: DEFERASIROX
     Indication: Iron metabolism disorder
     Dosage: 500 MG, QD
     Route: 065

REACTIONS (3)
  - Haematochezia [Recovering/Resolving]
  - Blister [Recovering/Resolving]
  - Abdominal pain [Recovering/Resolving]
